FAERS Safety Report 13301947 (Version 1)
Quarter: 2017Q1

REPORT INFORMATION
  Report Type: Spontaneous
  Country: US (occurrence: US)
  Receive Date: 20170307
  Receipt Date: 20170307
  Transmission Date: 20170428
  Serious: Yes (Other)
  Sender: FDA-Public Use
  Company Number: None

PATIENT
  Age: 46 Year
  Sex: Female
  Weight: 65.32 kg

DRUGS (2)
  1. MODAFINIL 200MG TABS [Suspect]
     Active Substance: MODAFINIL
     Indication: DEPRESSION
     Dosage: 200MG TAB BID PO??AT LEAST 1 MONTH
     Route: 048
  2. MODAFINIL 200MG TABS [Suspect]
     Active Substance: MODAFINIL
     Indication: NARCOLEPSY
     Dosage: 200MG TAB BID PO??AT LEAST 1 MONTH
     Route: 048

REACTIONS (4)
  - Product substitution issue [None]
  - Depression [None]
  - Crying [None]
  - Feeling abnormal [None]

NARRATIVE: CASE EVENT DATE: 2017
